FAERS Safety Report 9314343 (Version 1)
Quarter: 2013Q2

REPORT INFORMATION
  Report Type: Spontaneous
  Country: US (occurrence: None)
  Receive Date: 20130524
  Receipt Date: 20130524
  Transmission Date: 20140414
  Serious: Yes (Death, Hospitalization)
  Sender: FDA-Public Use
  Company Number: None

PATIENT
  Age: 53 Year
  Sex: Female
  Weight: 72.6 kg

DRUGS (10)
  1. BEVACIZUMAB [Suspect]
     Indication: METASTASES TO LIVER
     Route: 042
     Dates: start: 20130225, end: 20130506
  2. BEVACIZUMAB [Suspect]
     Indication: COLON CANCER METASTATIC
     Route: 042
     Dates: start: 20130225, end: 20130506
  3. OXALIPLATIN [Suspect]
     Route: 042
     Dates: start: 20130225, end: 20130506
  4. LEUCOVORIN [Suspect]
     Route: 042
     Dates: start: 20130225, end: 20130506
  5. 5-FU [Suspect]
     Route: 042
     Dates: start: 20130225, end: 20130506
  6. PROTONIX [Concomitant]
  7. ALPRAZOLAM [Concomitant]
  8. PROCHLORPERAZINE [Concomitant]
  9. LISINOPRIL/HCTZ [Concomitant]
  10. LORTAB [Concomitant]

REACTIONS (6)
  - Posterior reversible encephalopathy syndrome [None]
  - Brain oedema [None]
  - Metastases to meninges [None]
  - Encephalitis [None]
  - Meningitis [None]
  - Brain herniation [None]
